FAERS Safety Report 4707921-0 (Version None)
Quarter: 2005Q3

REPORT INFORMATION
  Report Type: 
  Country: None (occurrence: None)
  Receive Date: 20050705
  Receipt Date: 20050705
  Transmission Date: 20060218
  Serious: Yes (Hospitalization)
  Sender: FDA-Public Use
  Company Number: None

PATIENT
  Age: 56 Year
  Sex: Female

DRUGS (2)
  1. HURRICAINE SPRAY [Suspect]
     Indication: ENDOSCOPY
     Dosage: 1 SPRAY ENDOTRACHE
     Route: 007
  2. LIDOCAINE VISCOUS [Suspect]
     Indication: ENDOSCOPY
     Dosage: 1 SWALLOW ENDOTRACHE
     Route: 007

REACTIONS (3)
  - CYANOSIS [None]
  - DEPRESSED LEVEL OF CONSCIOUSNESS [None]
  - OXYGEN SATURATION DECREASED [None]
